FAERS Safety Report 21008081 (Version 1)
Quarter: 2022Q2

REPORT INFORMATION
  Report Type: Report from Study
  Country: US (occurrence: US)
  Receive Date: 20220627
  Receipt Date: 20220627
  Transmission Date: 20220721
  Serious: Yes (Hospitalization, Other)
  Sender: FDA-Public Use
  Company Number: US-UCBSA-2022034715

PATIENT
  Age: 89 Year
  Sex: Female

DRUGS (1)
  1. ROTIGOTINE [Suspect]
     Active Substance: ROTIGOTINE
     Indication: Parkinson^s disease
     Dosage: 6 MILLIGRAM, ONCE DAILY (QD)
     Route: 062

REACTIONS (2)
  - Lower limb fracture [Not Recovered/Not Resolved]
  - Fracture treatment [Not Recovered/Not Resolved]

NARRATIVE: CASE EVENT DATE: 20220501
